FAERS Safety Report 10158399 (Version 3)
Quarter: 2014Q2

REPORT INFORMATION
  Report Type: Spontaneous
  Country: None (occurrence: DE)
  Receive Date: 20140507
  Receipt Date: 20140523
  Transmission Date: 20141212
  Serious: Yes (Hospitalization, Other)
  Sender: FDA-Public Use
  Company Number: DE-ALLERGAN-1409034US

PATIENT
  Age: 84 Year
  Sex: Male

DRUGS (5)
  1. TROSPIUM CHLORIDE UNK [Suspect]
     Indication: BENIGN PROSTATIC HYPERPLASIA
     Dosage: 15 MG, BID
     Route: 048
     Dates: start: 20140423, end: 20140426
  2. DOXAZOSIN [Concomitant]
     Indication: BENIGN PROSTATIC HYPERPLASIA
     Dosage: UNK
     Dates: end: 20140426
  3. LISINOPRIL [Concomitant]
     Indication: HYPERTENSION
     Dosage: 10 MG, BID
  4. BISOPROLOL [Concomitant]
     Indication: HYPERTENSION
     Dosage: 10 MG, BID
  5. LERCANIDIPINE [Concomitant]
     Indication: HYPERTENSION
     Dosage: 10 MG, BID

REACTIONS (3)
  - Condition aggravated [Recovered/Resolved]
  - Urinary retention [Recovered/Resolved]
  - Off label use [Unknown]
